FAERS Safety Report 5368079-0 (Version None)
Quarter: 2007Q2

REPORT INFORMATION
  Report Type: 
  Country: None (occurrence: None)
  Receive Date: 20070622
  Receipt Date: 20070612
  Transmission Date: 20071010
  Serious: Yes (Death, Life-Threatening)
  Sender: FDA-Public Use
  Company Number: US-MERCK-0705USA00016

PATIENT
  Age: 57 Year
  Sex: Female

DRUGS (6)
  1. CANCIDAS [Suspect]
     Indication: FUNGAL INFECTION
     Route: 042
  2. FLUCONAZOLE [Concomitant]
     Indication: ANTIFUNGAL PROPHYLAXIS
     Route: 065
  3. IMIPENEM [Concomitant]
     Route: 065
  4. VORICONAZOLE [Concomitant]
     Route: 048
  5. AMPHOTERICIN B AND L-(ALPHA)-DIMYRISTOYLPHOSPHATIDYLCHOLINE AND L-(ALP [Concomitant]
     Route: 042
  6. POSACONAZOLE [Concomitant]
     Route: 048

REACTIONS (9)
  - BLOOD CREATININE INCREASED [None]
  - CLOSTRIDIUM DIFFICILE COLITIS [None]
  - DEATH [None]
  - DYSPNOEA [None]
  - ESCHERICHIA BACTERAEMIA [None]
  - MUCOSAL INFLAMMATION [None]
  - NEUTROPENIA [None]
  - SYSTEMIC CANDIDA [None]
  - TREATMENT FAILURE [None]
